FAERS Safety Report 6616308-5 (Version None)
Quarter: 2010Q1

REPORT INFORMATION
  Report Type: 
  Country: None (occurrence: None)
  Receive Date: 20100305
  Receipt Date: 20100225
  Transmission Date: 20100710
  Serious: Yes (Death)
  Sender: FDA-Public Use
  Company Number: US-ROCHE-681431

PATIENT
  Sex: Female

DRUGS (2)
  1. PEG-INTERFERON A-2A (RO 25-8310) [Suspect]
     Indication: HEPATITIS C
     Dosage: THE LAST TREATMENT IN MAY 2009. THERAPY START DATE: MAY OR JUNE 2008.
     Route: 065
     Dates: start: 20080501, end: 20090501
  2. RIBAVIRIN [Suspect]
     Indication: HEPATITIS C
     Dosage: THE LAST TREATMENT IN MAY 2009. THERAPY START DATE: MAY OR JUNE 2008.
     Route: 065
     Dates: start: 20080501, end: 20090501

REACTIONS (1)
  - CARDIAC ARREST [None]
